FAERS Safety Report 8314281-5 (Version None)
Quarter: 2012Q2

REPORT INFORMATION
  Report Type: 
  Country: None (occurrence: None)
  Receive Date: 20120426
  Receipt Date: 20120419
  Transmission Date: 20120825
  Serious: Yes (Other)
  Sender: FDA-Public Use
  Company Number: US-PFIZER INC-2012040679

PATIENT
  Sex: Female

DRUGS (5)
  1. GEODON [Suspect]
     Indication: BIPOLAR DISORDER
     Dosage: 40 MG, DAILY
     Route: 048
     Dates: start: 20111005, end: 20110101
  2. XANAX [Concomitant]
     Indication: GENERALISED ANXIETY DISORDER
     Dosage: 0.5 MG, AS NEEDED
     Dates: start: 20101201
  3. ZOLOFT [Concomitant]
     Indication: GENERALISED ANXIETY DISORDER
     Dosage: 75 MG, DAILY
     Dates: start: 20101201
  4. KLONOPIN [Concomitant]
     Indication: GENERALISED ANXIETY DISORDER
     Dosage: 0.125 MG, DAILY AS NEEDED
     Dates: start: 20101201
  5. GEODON [Suspect]
     Dosage: 20 MG, DAILY
     Route: 048
     Dates: start: 20110101, end: 20120120

REACTIONS (4)
  - NAUSEA [None]
  - THIRST [None]
  - POLLAKIURIA [None]
  - HYPERGLYCAEMIA [None]
